FAERS Safety Report 4424072-3 (Version None)
Quarter: 2004Q3

REPORT INFORMATION
  Report Type: 
  Country: None (occurrence: None)
  Receive Date: 20040806
  Receipt Date: 20040803
  Transmission Date: 20050211
  Serious: Yes (Other)
  Sender: FDA-Public Use
  Company Number: GBWYE945503AUG04

PATIENT
  Age: 39 Year
  Sex: Female

DRUGS (1)
  1. EFFEXOR [Suspect]

REACTIONS (5)
  - AMENORRHOEA [None]
  - BLOOD FOLLICLE STIMULATING HORMONE INCREASED [None]
  - BLOOD THYROID STIMULATING HORMONE INCREASED [None]
  - HYPOTHALAMO-PITUITARY DISORDERS [None]
  - THYROXINE DECREASED [None]
